FAERS Safety Report 20680138 (Version 3)
Quarter: 2022Q2

REPORT INFORMATION
  Report Type: Report from Study
  Country: DE (occurrence: DE)
  Receive Date: 20220406
  Receipt Date: 20220519
  Transmission Date: 20220720
  Serious: Yes (Hospitalization)
  Sender: FDA-Public Use
  Company Number: DE-SEATTLE GENETICS-2022SGN02689

PATIENT
  Age: 71 Year
  Sex: Female
  Weight: 79 kg

DRUGS (14)
  1. TISOTUMAB VEDOTIN [Suspect]
     Active Substance: TISOTUMAB VEDOTIN
     Indication: Non-small cell lung cancer
     Dosage: 1.7 MG/KG ON DAYS 1 AND 15 OF EVERY 28 DAY CYCLE
     Route: 042
     Dates: start: 20220301
  2. ROSUVASTATIN [Concomitant]
     Active Substance: ROSUVASTATIN
     Indication: Cardiovascular event prophylaxis
     Dosage: 20 MG, QD
     Route: 048
     Dates: start: 202106
  3. FOSTER [Concomitant]
     Active Substance: BECLOMETHASONE\FORMOTEROL
     Indication: Chronic obstructive pulmonary disease
     Dosage: UNK
     Dates: start: 2018
  4. SPIRIVA RESPIMAT [Concomitant]
     Active Substance: TIOTROPIUM BROMIDE
     Indication: Chronic obstructive pulmonary disease
     Dosage: 2.5 MG, QD
     Dates: start: 2019
  5. LANTUS [Concomitant]
     Active Substance: INSULIN GLARGINE
     Indication: Type 2 diabetes mellitus
     Dosage: UNK
     Route: 058
     Dates: start: 202011
  6. BEROTEC [Concomitant]
     Active Substance: FENOTEROL HYDROBROMIDE
     Indication: Asthma
     Dosage: 0.1 MG PRN
     Dates: start: 2018
  7. OZEMPIC [Concomitant]
     Active Substance: SEMAGLUTIDE
     Indication: Type 2 diabetes mellitus
     Dosage: 1 MG, QWEEK
     Dates: start: 202111
  8. PREGABALIN [Concomitant]
     Active Substance: PREGABALIN
     Dosage: 25 MG PRN
     Route: 048
     Dates: start: 202111
  9. CELESTAN-V [Concomitant]
     Indication: Ankle fracture
     Dosage: 1.2/14 MG/G PRN
     Route: 065
     Dates: start: 20220228
  10. MOVICOL [Concomitant]
     Active Substance: POLYETHYLENE GLYCOL 3350\POTASSIUM CHLORIDE\SODIUM BICARBONATE\SODIUM CHLORIDE
     Indication: Constipation
     Dosage: UNK
     Route: 048
     Dates: start: 20220309
  11. IBUPROFEN [Concomitant]
     Active Substance: IBUPROFEN
     Indication: Rheumatoid arthritis
     Dosage: 800 MG PRN
     Route: 048
     Dates: start: 2017
  12. NOVALGIN (METAMIZOLE SODIUM) [Concomitant]
     Active Substance: METAMIZOLE SODIUM
     Indication: Rheumatoid arthritis
     Dosage: 500 MG PRN
     Route: 048
     Dates: start: 2017
  13. SULMYCIN [GENTAMICIN SULFATE] [Concomitant]
     Indication: Eczema
     Dosage: UNK
     Route: 065
     Dates: start: 20220228
  14. SULMYCIN [GENTAMICIN SULFATE] [Concomitant]
     Indication: Dermatitis

REACTIONS (3)
  - C-reactive protein increased [Recovering/Resolving]
  - Faecaloma [Recovered/Resolved]
  - Constipation [Recovered/Resolved]

NARRATIVE: CASE EVENT DATE: 20220315
